FAERS Safety Report 9460905 (Version 2)
Quarter: 2013Q4

REPORT INFORMATION
  Report Type: Spontaneous
  Country: US (occurrence: US)
  Receive Date: 20130816
  Receipt Date: 20131022
  Transmission Date: 20140711
  Serious: Yes (Hospitalization)
  Sender: FDA-Public Use
  Company Number: US-BIOGENIDEC-2013BI075109

PATIENT
  Sex: Female

DRUGS (9)
  1. TYSABRI [Suspect]
     Indication: MULTIPLE SCLEROSIS
     Route: 042
     Dates: start: 2013, end: 201308
  2. LOESTRIN [Concomitant]
  3. TOLTERODINE TARTRATE [Concomitant]
  4. VENLAFAXINE [Concomitant]
  5. DESMOPRESSIN ACETATE [Concomitant]
  6. TRAMADOL [Concomitant]
  7. ALPRAZOLAM [Concomitant]
  8. GABAPENTIN [Concomitant]
  9. LAMOTRIGINE [Concomitant]

REACTIONS (6)
  - Liver function test abnormal [Unknown]
  - Blood bilirubin increased [Unknown]
  - Drug-induced liver injury [Unknown]
  - Urinary tract infection [Unknown]
  - Vomiting [Unknown]
  - Cognitive disorder [Unknown]
